FAERS Safety Report 8105226-1 (Version None)
Quarter: 2012Q1

REPORT INFORMATION
  Report Type: 
  Country: None (occurrence: None)
  Receive Date: 20120201
  Receipt Date: 20120130
  Transmission Date: 20120608
  Serious: Yes (Hospitalization)
  Sender: FDA-Public Use
  Company Number: US-VERTEX PHARMACEUTICALS INC.-AE-2012-001558

PATIENT
  Sex: Male
  Weight: 105.33 kg

DRUGS (5)
  1. BUSPAR [Concomitant]
     Indication: ANXIETY
  2. PEGASYS [Concomitant]
     Indication: HEPATITIS C
     Route: 058
     Dates: start: 20111101
  3. TRAZODONE HCL [Concomitant]
     Indication: ANXIETY
  4. RIBASPHERE [Concomitant]
     Indication: HEPATITIS C
     Route: 048
     Dates: start: 20111101
  5. INCIVEK [Suspect]
     Indication: HEPATITIS C
     Route: 048
     Dates: start: 20111101, end: 20120119

REACTIONS (1)
  - PULMONARY EMBOLISM [None]
